FAERS Safety Report 7397019-8 (Version None)
Quarter: 2011Q1

REPORT INFORMATION
  Report Type: 
  Country: None (occurrence: None)
  Receive Date: 20110331
  Receipt Date: 20110331
  Transmission Date: 20110831
  Serious: Yes (Life-Threatening, Hospitalization)
  Sender: FDA-Public Use
  Company Number: None

PATIENT
  Age: 53 Year
  Sex: Female
  Weight: 77.1115 kg

DRUGS (1)
  1. ASACOL [Suspect]
     Indication: COLITIS
     Dosage: 1-3X DAY 3X DAY ORAL
     Route: 048
     Dates: start: 20091001, end: 20100201

REACTIONS (3)
  - RESPIRATORY FAILURE [None]
  - PNEUMONITIS [None]
  - MIDDLE INSOMNIA [None]
